FAERS Safety Report 6810064-3 (Version None)
Quarter: 2010Q2

REPORT INFORMATION
  Report Type: 
  Country: None (occurrence: None)
  Receive Date: 20100630
  Receipt Date: 20100618
  Transmission Date: 20101027
  Serious: Yes (Hospitalization)
  Sender: FDA-Public Use
  Company Number: US-ROCHE-705316

PATIENT
  Sex: Male
  Weight: 81.1 kg

DRUGS (7)
  1. BEVACIZUMAB [Suspect]
     Indication: GLIOBLASTOMA
     Route: 042
     Dates: start: 20100208, end: 20100322
  2. BEVACIZUMAB [Suspect]
     Route: 042
     Dates: start: 20100430
  3. TOPOTECAN [Suspect]
     Indication: GLIOBLASTOMA
     Route: 065
     Dates: start: 20100501, end: 20100505
  4. TEMODAR [Suspect]
     Indication: GLIOBLASTOMA
     Dosage: FREQUENCY: DAILY
     Route: 048
     Dates: start: 20100208, end: 20100325
  5. TEMODAR [Suspect]
     Route: 048
     Dates: start: 20100430, end: 20100504
  6. KEPPRA [Concomitant]
  7. OMEPRAZOLE [Concomitant]
     Dosage: FREQUENCY: QD

REACTIONS (3)
  - GRAND MAL CONVULSION [None]
  - PYREXIA [None]
  - SUBARACHNOID HAEMORRHAGE [None]
